FAERS Safety Report 7267557-7 (Version None)
Quarter: 2011Q1

REPORT INFORMATION
  Report Type: 
  Country: None (occurrence: None)
  Receive Date: 20110201
  Receipt Date: 20110124
  Transmission Date: 20110831
  Serious: Yes (Hospitalization, Other)
  Sender: FDA-Public Use
  Company Number: US-ELI_LILLY_AND_COMPANY-US200906005608

PATIENT
  Sex: Female
  Weight: 81.633 kg

DRUGS (26)
  1. SEROQUEL [Concomitant]
     Dosage: 400 MG, UNKNOWN
  2. HYOSCYAMINE [Concomitant]
     Dosage: 0.125 MG, UNKNOWN
     Route: 060
  3. IMDUR [Concomitant]
     Dosage: UNK, UNKNOWN
  4. SULCRATE [Concomitant]
     Dosage: 1 G, UNKNOWN
  5. NEXIUM [Concomitant]
     Dosage: 40 MG, UNKNOWN
  6. CYMBALTA [Concomitant]
     Dosage: 30 MG, UNKNOWN
  7. GLYBURIDE [Concomitant]
  8. BYETTA [Suspect]
     Dosage: 5 UG, UNKNOWN
     Dates: start: 20080201, end: 20080801
  9. TRICOR [Concomitant]
     Dosage: 145 MG, UNKNOWN
  10. ASA [Concomitant]
     Dosage: UNK, UNKNOWN
  11. CIPRO [Concomitant]
     Dosage: 500 MG, UNKNOWN
  12. PROPOXYPHENE HYDROCHLORIDE [Concomitant]
     Dosage: UNK, UNKNOWN
  13. AMBIEN [Concomitant]
     Indication: INSOMNIA
     Dosage: 12.5 MG, UNKNOWN
  14. METOCLOPRAMIDE [Concomitant]
     Dosage: UNK, UNKNOWN
  15. VYTORIN [Concomitant]
     Dosage: UNK, UNKNOWN
  16. HYDROXYZINE PAMOATE [Concomitant]
     Dosage: 25 MG, UNKNOWN
  17. BYETTA [Suspect]
     Dosage: UNK, UNKNOWN
     Dates: start: 20061020, end: 20061220
  18. METOPROLOL [Concomitant]
     Indication: HYPERTENSION
     Dosage: 50 MG, DAILY (1/D)
  19. GLUCOVANCE [Concomitant]
     Dosage: 500 MG, UNKNOWN
  20. ISOSORBIDE                         /00586302/ [Concomitant]
     Dosage: 20 MG, UNK
  21. HUMALOG MIX /01500801/ [Concomitant]
     Dosage: 40 U, EACH MORNING
  22. HUMALOG MIX /01500801/ [Concomitant]
     Dosage: 28 U, EACH EVENING
  23. LUNESTA [Concomitant]
     Indication: INSOMNIA
     Dosage: UNK, EACH EVENING
  24. PLAVIX [Concomitant]
     Indication: CARDIAC DISORDER
     Dosage: 75 MG, DAILY (1/D)
  25. ALPRAZOLAM [Concomitant]
     Dosage: 0.25 MG, UNKNOWN
  26. ZOLOFT [Concomitant]
     Dosage: 50 MG, UNKNOWN

REACTIONS (6)
  - RENAL INJURY [None]
  - PANCREATITIS ACUTE [None]
  - PANCREATITIS CHRONIC [None]
  - MALAISE [None]
  - NAUSEA [None]
  - OFF LABEL USE [None]
